FAERS Safety Report 8321985-7 (Version None)
Quarter: 2012Q2

REPORT INFORMATION
  Report Type: 
  Country: None (occurrence: None)
  Receive Date: 20120430
  Receipt Date: 20120424
  Transmission Date: 20120825
  Serious: No
  Sender: FDA-Public Use
  Company Number: US-PFIZER INC-2012062168

PATIENT
  Sex: Female

DRUGS (8)
  1. WARFARIN [Concomitant]
     Dosage: 5MG X 5 THEN 2.5 X 2 DAYS
     Dates: start: 20110901
  2. LEVOTHYROXINE [Concomitant]
     Indication: HYPOTHYROIDISM
     Dosage: 50 MG,QD
     Dates: start: 20110401
  3. XALKORI [Suspect]
     Indication: NON-SMALL CELL LUNG CANCER
  4. ONDANSETRON [Concomitant]
     Indication: NAUSEA
     Dosage: UNK
     Dates: start: 20110101
  5. LEXAPRO [Concomitant]
     Indication: DEPRESSION
     Dosage: 15 MG, QD
     Dates: start: 20110101
  6. ZOMETA [Concomitant]
     Indication: ANXIETY
     Dosage: 4 MG, MONTHLY
  7. ZOMETA [Concomitant]
     Dosage: 1 MG, QD
  8. XALKORI [Suspect]
     Indication: LUNG NEOPLASM
     Dosage: 250 MG, 2X/DAY
     Dates: start: 20111008

REACTIONS (3)
  - RASH [None]
  - ERYTHEMA [None]
  - RASH MACULO-PAPULAR [None]
